FAERS Safety Report 4998410-7 (Version None)
Quarter: 2006Q2

REPORT INFORMATION
  Report Type: 
  Country: None (occurrence: None)
  Receive Date: 20060510
  Receipt Date: 20010209
  Transmission Date: 20061013
  Serious: Yes (Death, Life-Threatening, Hospitalization, Disabling, Other)
  Sender: FDA-Public Use
  Company Number: US-GLAXOSMITHKLINE-A0140274A

PATIENT
  Age: 47 Year
  Sex: Female
  Weight: 76.4 kg

DRUGS (4)
  1. IMITREX [Suspect]
     Indication: MIGRAINE
     Dosage: 25MG AS REQUIRED
     Route: 048
     Dates: start: 19951215, end: 19980403
  2. IMITREX [Suspect]
     Dosage: 6MG AS REQUIRED
     Route: 058
     Dates: start: 19941111, end: 19980403
  3. IMITREX [Suspect]
     Route: 045
     Dates: start: 19971201
  4. MOTRIN [Concomitant]
     Indication: HEADACHE
     Dosage: 800MG AS REQUIRED
     Route: 048

REACTIONS (11)
  - ANGINA PECTORIS [None]
  - ARTERIOSPASM CORONARY [None]
  - ASTHENIA [None]
  - BACK PAIN [None]
  - CARDIAC ARREST [None]
  - CARDIOMEGALY [None]
  - CHEST PAIN [None]
  - DIFFICULTY IN WALKING [None]
  - EJECTION FRACTION DECREASED [None]
  - ISCHAEMIC CARDIOMYOPATHY [None]
  - MYOCARDIAL INFARCTION [None]
